FAERS Safety Report 9064014 (Version 1)
Quarter: 2013Q1

REPORT INFORMATION
  Report Type: Report from Study
  Country: US (occurrence: US)
  Receive Date: 20130130
  Receipt Date: 20130130
  Transmission Date: 20140127
  Serious: No
  Sender: FDA-Public Use
  Company Number: US-ABBOTT-12P-163-0934527-00

PATIENT
  Age: 44 Year
  Sex: Male
  Weight: 86.26 kg

DRUGS (9)
  1. HUMIRA 40 MG/0.8 ML PEN [Suspect]
     Indication: PSORIASIS
     Dosage: LOADING DOSE
     Dates: start: 20120419, end: 20120419
  2. HUMIRA 40 MG/0.8 ML PEN [Suspect]
     Dates: start: 20120426
  3. PRAVASTATIN [Concomitant]
     Indication: BLOOD CHOLESTEROL INCREASED
     Dosage: 80MG DAILY
  4. FENOFIBRATE [Concomitant]
     Indication: BLOOD CHOLESTEROL INCREASED
     Dosage: 116MG DAILY
  5. LOVAZA [Concomitant]
     Indication: BLOOD CHOLESTEROL INCREASED
  6. METFORMIN [Concomitant]
     Indication: DIABETES MELLITUS
  7. ASA [Concomitant]
     Indication: MYOCARDIAL INFARCTION
     Dosage: 81MG DAILY
  8. ASA [Concomitant]
     Indication: PROPHYLAXIS
  9. GLIPIZIDE [Concomitant]
     Indication: DIABETES MELLITUS
     Dates: end: 201204

REACTIONS (5)
  - Injection site bruising [Recovered/Resolved]
  - Chest pain [Not Recovered/Not Resolved]
  - Weight increased [Not Recovered/Not Resolved]
  - Dyspepsia [Not Recovered/Not Resolved]
  - Weight increased [Not Recovered/Not Resolved]
